FAERS Safety Report 17114079 (Version 2)
Quarter: 2019Q4

REPORT INFORMATION
  Report Type: Report from Study
  Country: BE (occurrence: BE)
  Receive Date: 20191205
  Receipt Date: 20191209
  Transmission Date: 20200122
  Serious: Yes (Hospitalization)
  Sender: FDA-Public Use
  Company Number: BE-KARYOPHARM THERAPEUTICS, INC.-2018KPT000144

PATIENT
  Age: 72 Year
  Sex: Female
  Weight: 115 kg

DRUGS (11)
  1. ALPRAZOLAM. [Concomitant]
     Active Substance: ALPRAZOLAM
     Dosage: UNK
     Dates: start: 20180306
  2. PANTOMED [Concomitant]
     Dosage: UNK
     Dates: start: 201709
  3. LEXOTAN [Concomitant]
     Active Substance: BROMAZEPAM
  4. ATORVASTATIN [Concomitant]
     Active Substance: ATORVASTATIN
     Dosage: UNK
  5. BEFACT [Concomitant]
     Dosage: UNK
     Dates: start: 20180206
  6. CO-APROVEL [Concomitant]
     Active Substance: HYDROCHLOROTHIAZIDE\IRBESARTAN
     Indication: PRODUCT USED FOR UNKNOWN INDICATION
     Dosage: UNK
  7. SIPRALEXA [Concomitant]
     Active Substance: ESCITALOPRAM OXALATE
     Indication: PRODUCT USED FOR UNKNOWN INDICATION
  8. SELINEXOR [Suspect]
     Active Substance: SELINEXOR
     Dates: start: 20180307
  9. ULTRA-K [Concomitant]
     Indication: HYPOKALAEMIA
  10. XANAX [Concomitant]
     Active Substance: ALPRAZOLAM
  11. INNOHEP [Concomitant]
     Active Substance: TINZAPARIN SODIUM
     Dosage: UNK

REACTIONS (1)
  - Vertigo positional [Recovered/Resolved]

NARRATIVE: CASE EVENT DATE: 20180308
